FAERS Safety Report 17313931 (Version 1)
Quarter: 2020Q1

REPORT INFORMATION
  Report Type: Spontaneous
  Country: US (occurrence: US)
  Receive Date: 20200124
  Receipt Date: 20200124
  Transmission Date: 20200409
  Serious: No
  Sender: FDA-Public Use
  Company Number: NVSC2020US017056

PATIENT
  Age: 66 Year
  Sex: Male

DRUGS (1)
  1. NETSPOT [Suspect]
     Active Substance: DOTATATE GALLIUM GA-68
     Indication: PANCREATIC NEUROENDOCRINE TUMOUR
     Dosage: 5.6 MCI, UNKNOWN FREQUENCY
     Route: 042

REACTIONS (1)
  - Nausea [Recovered/Resolved]
